FAERS Safety Report 21201340 (Version 1)
Quarter: 2022Q3

REPORT INFORMATION
  Report Type: Spontaneous
  Country: US (occurrence: None)
  Receive Date: 20220810
  Receipt Date: 20220810
  Transmission Date: 20221027
  Serious: Yes (Other)
  Sender: FDA-Public Use
  Company Number: None

PATIENT
  Age: 60 Year
  Sex: Female
  Weight: 61.2 kg

DRUGS (6)
  1. HERBALS [Suspect]
     Active Substance: HERBALS
     Dates: start: 20210425, end: 20210425
  2. VITAMIN C [Concomitant]
     Active Substance: ASCORBIC ACID
  3. HERBALS\TURMERIC [Concomitant]
     Active Substance: HERBALS\TURMERIC
  4. CALCIUM [Concomitant]
     Active Substance: CALCIUM
  5. D [Concomitant]
  6. Peptides [Concomitant]

REACTIONS (1)
  - Scar [None]

NARRATIVE: CASE EVENT DATE: 20210425
